FAERS Safety Report 20618840 (Version 1)
Quarter: 2022Q1

REPORT INFORMATION
  Report Type: Report from Study
  Country: IT (occurrence: IT)
  Receive Date: 20220322
  Receipt Date: 20220322
  Transmission Date: 20220424
  Serious: Yes (Hospitalization, Other)
  Sender: FDA-Public Use
  Company Number: IT-NOVARTISPH-NVSC2022IT062616

PATIENT
  Age: 71 Year
  Sex: Male
  Weight: 80 kg

DRUGS (2)
  1. CAPMATINIB [Suspect]
     Active Substance: CAPMATINIB
     Indication: Non-small cell lung cancer metastatic
     Dosage: 800 UG (400 UG/BID)
     Route: 048
     Dates: start: 20210408, end: 20220208
  2. CAPMATINIB [Suspect]
     Active Substance: CAPMATINIB
     Dosage: 300 UG, BID
     Route: 048
     Dates: start: 20220311

REACTIONS (4)
  - Generalised oedema [Recovered/Resolved]
  - Acute respiratory distress syndrome [Unknown]
  - Asthenia [Unknown]
  - Dyspnoea [Unknown]

NARRATIVE: CASE EVENT DATE: 20220207
